FAERS Safety Report 15060932 (Version 1)
Quarter: 2018Q2

REPORT INFORMATION
  Report Type: Spontaneous
  Country: US (occurrence: US)
  Receive Date: 20180625
  Receipt Date: 20180625
  Transmission Date: 20180711
  Serious: No
  Sender: FDA-Public Use
  Company Number: US-ROCHE-2064839

PATIENT
  Sex: Female
  Weight: 61.29 kg

DRUGS (2)
  1. KLONOPIN [Suspect]
     Active Substance: CLONAZEPAM
     Indication: ANXIETY
     Route: 065
  2. CLONAZEPAM (TEVA PHARM) [Suspect]
     Active Substance: CLONAZEPAM
     Indication: ANXIETY
     Dosage: THREE 1MG TABS PER DAY
     Route: 065

REACTIONS (2)
  - Drug screen negative [Unknown]
  - Pain [Unknown]
